FAERS Safety Report 7450405-X (Version None)
Quarter: 2011Q2

REPORT INFORMATION
  Report Type: 
  Country: None (occurrence: None)
  Receive Date: 20110429
  Receipt Date: 20110429
  Transmission Date: 20111010
  Serious: Yes (Disabling, Other)
  Sender: FDA-Public Use
  Company Number: None

PATIENT
  Age: 27 Year
  Sex: Female
  Weight: 12.2471 kg

DRUGS (1)
  1. IMPLANON [Suspect]
     Indication: CONTRACEPTION
     Dosage: SUBDERMAL
     Route: 059
     Dates: start: 20110311, end: 20110428

REACTIONS (27)
  - ANXIETY [None]
  - VISION BLURRED [None]
  - BALANCE DISORDER [None]
  - ACNE [None]
  - VULVOVAGINAL PRURITUS [None]
  - METRORRHAGIA [None]
  - EATING DISORDER [None]
  - APPLICATION SITE SWELLING [None]
  - APPLICATION SITE ERYTHEMA [None]
  - VISUAL IMPAIRMENT [None]
  - SPEECH DISORDER [None]
  - DEPRESSION [None]
  - MOOD SWINGS [None]
  - NAUSEA [None]
  - TREMOR [None]
  - BODY TEMPERATURE INCREASED [None]
  - HOT FLUSH [None]
  - INSOMNIA [None]
  - BREAST TENDERNESS [None]
  - NERVOUSNESS [None]
  - INFLUENZA LIKE ILLNESS [None]
  - NIGHT SWEATS [None]
  - MUSCLE SPASMS [None]
  - HEADACHE [None]
  - CHEST DISCOMFORT [None]
  - ABNORMAL BEHAVIOUR [None]
  - EMOTIONAL DISORDER [None]
